FAERS Safety Report 8346645-8 (Version None)
Quarter: 2012Q2

REPORT INFORMATION
  Report Type: 
  Country: None (occurrence: None)
  Receive Date: 20120509
  Receipt Date: 20120505
  Transmission Date: 20120825
  Serious: Yes (Death, Hospitalization)
  Sender: FDA-Public Use
  Company Number: PHFR2012GB002751

PATIENT
  Sex: Male

DRUGS (1)
  1. CLOZARIL [Suspect]
     Indication: SCHIZOPHRENIA
     Dosage: 850 MG, DAILY
     Route: 048
     Dates: start: 19950817

REACTIONS (3)
  - DEATH [None]
  - CEREBRAL DISORDER [None]
  - BLOOD GLUCOSE DECREASED [None]
